FAERS Safety Report 8668154 (Version 2)
Quarter: 2012Q4

REPORT INFORMATION
  Report Type: 
  Country: US (occurrence: US)
  Receive Date: 20120717
  Receipt Date: 20120924
  Transmission Date: 20130627
  Serious: Yes (Hospitalization)
  Sender: FDA-Public Use
  Company Number: US-BAYER-2012-070418

PATIENT
  Age: 37 Year
  Sex: Female
  Weight: 73.92 kg

DRUGS (6)
  1. YAZ [Suspect]
     Indication: CONTRACEPTION
     Dosage: UNK
     Dates: start: 20071213, end: 20090811
  2. YAZ [Suspect]
     Indication: PREMENSTRUAL SYNDROME
  3. LEXAPRO [Concomitant]
     Indication: DEPRESSION
     Dosage: 10 mg, UNK
     Route: 048
  4. LEXAPRO [Concomitant]
     Indication: PREMENSTRUAL SYNDROME
  5. TRAZODONE [Concomitant]
     Indication: INSOMNIA
     Dosage: 50 mg, PRN
     Route: 048
  6. DARVOCET-N [Concomitant]

REACTIONS (18)
  - Pulmonary embolism [None]
  - Injury [None]
  - Pain [None]
  - Dyspnoea [None]
  - Palpitations [None]
  - Chest pain [None]
  - Flank pain [None]
  - Musculoskeletal pain [None]
  - Hypoaesthesia [None]
  - Neck pain [None]
  - Emotional distress [None]
  - Fear of disease [None]
  - Pain [None]
  - Anxiety [None]
  - Stress [None]
  - Lung disorder [None]
  - Non-cardiac chest pain [None]
  - Electrocardiogram ST-T segment abnormal [None]
